FAERS Safety Report 4354400-9 (Version None)
Quarter: 2004Q2

REPORT INFORMATION
  Report Type: 
  Country: None (occurrence: None)
  Receive Date: 20040503
  Receipt Date: 20040421
  Transmission Date: 20050107
  Serious: Yes (Hospitalization)
  Sender: FDA-Public Use
  Company Number: 2004AP00837

PATIENT
  Age: 76 Year
  Sex: Female

DRUGS (11)
  1. IRESSA [Suspect]
     Indication: ADENOCARCINOMA
     Dosage: 250 MG DAILY; PO
     Route: 048
     Dates: start: 20030724, end: 20030820
  2. IRESSA [Suspect]
     Indication: NON-SMALL CELL LUNG CANCER
     Dosage: 250 MG DAILY; PO
     Route: 048
     Dates: start: 20030724, end: 20030820
  3. NU LOTAN [Concomitant]
  4. PROTECADIN [Concomitant]
  5. MYSLEE [Concomitant]
  6. MUCOSTA [Concomitant]
  7. TOUGHMAC [Concomitant]
  8. MUCODYNE [Concomitant]
  9. CELESTAMINE TAB [Concomitant]
  10. MAGNESIUM OXIDE [Concomitant]
  11. LOXONIN [Concomitant]

REACTIONS (6)
  - CARDIAC FAILURE [None]
  - CONDITION AGGRAVATED [None]
  - FACE OEDEMA [None]
  - OEDEMA PERIPHERAL [None]
  - PLEURAL EFFUSION [None]
  - PO2 DECREASED [None]
